FAERS Safety Report 23787369 (Version 1)
Quarter: 2024Q2

REPORT INFORMATION
  Report Type: Spontaneous
  Country: IT (occurrence: IT)
  Receive Date: 20240426
  Receipt Date: 20240426
  Transmission Date: 20240716
  Serious: Yes (Hospitalization, Other)
  Sender: FDA-Public Use
  Company Number: IT-SANDOZ-SDZ2024IT037390

PATIENT
  Age: 30 Year
  Sex: Male

DRUGS (5)
  1. FEBUXOSTAT [Suspect]
     Active Substance: FEBUXOSTAT
     Indication: Hypoxanthine-guanine phosphoribosyl transferase deficiency
     Dosage: 80 MILLIGRAM, ONCE A DAY
     Route: 065
     Dates: start: 2022
  2. FEBUXOSTAT [Suspect]
     Active Substance: FEBUXOSTAT
     Indication: Hyperuricaemia
     Dosage: 80 MILLIGRAM(80 MILLIGRAM, QOD (REDUCED TO 80MG ONCE DAILY ON ALTERNATE DAYS)
     Route: 065
  3. B12 [Concomitant]
     Indication: Hypoxanthine-guanine phosphoribosyl transferase deficiency
     Dosage: 1000 INTERNATIONAL UNIT, EVERY WEEK
     Route: 065
     Dates: start: 2022
  4. FOLIC ACID [Concomitant]
     Active Substance: FOLIC ACID
     Indication: Hypoxanthine-guanine phosphoribosyl transferase deficiency
     Dosage: 5 MILLIGRAM, ONCE A DAY
     Route: 065
     Dates: start: 2022
  5. POTASSIUM CITRATE [Concomitant]
     Active Substance: POTASSIUM CITRATE
     Indication: Hypoxanthine-guanine phosphoribosyl transferase deficiency
     Dosage: 7 GRAM, ONCE A DAY(3.5G TWICE DAILY)
     Route: 065
     Dates: start: 2022

REACTIONS (7)
  - Nephrolithiasis [Unknown]
  - Hydronephrosis [Unknown]
  - Urinary tract infection [Unknown]
  - Underdose [Unknown]
  - Inappropriate schedule of product administration [Unknown]
  - Device deposit issue [Recovered/Resolved]
  - Off label use [Unknown]
